FAERS Safety Report 6433964-5 (Version None)
Quarter: 2009Q4

REPORT INFORMATION
  Report Type: 
  Country: None (occurrence: None)
  Receive Date: 20091110
  Receipt Date: 20091106
  Transmission Date: 20100525
  Serious: Yes (Hospitalization)
  Sender: FDA-Public Use
  Company Number: NL-BRISTOL-MYERS SQUIBB COMPANY-14845523

PATIENT
  Age: 42 Year
  Sex: Male

DRUGS (4)
  1. BARACLUDE [Suspect]
     Dates: start: 20091007
  2. NIFEDIPINE [Concomitant]
  3. HYDROCHLOROTHIAZIDE [Concomitant]
  4. METOCLOPRAMIDE [Concomitant]

REACTIONS (1)
  - EPILEPSY [None]
